FAERS Safety Report 6095789-2 (Version None)
Quarter: 2009Q1

REPORT INFORMATION
  Report Type: 
  Country: None (occurrence: None)
  Receive Date: 20090227
  Receipt Date: 20080616
  Transmission Date: 20090719
  Serious: No
  Sender: FDA-Public Use
  Company Number: A0733145A

PATIENT
  Age: 40 Year
  Sex: Female

DRUGS (2)
  1. LAMICTAL [Suspect]
     Indication: BIPOLAR DISORDER
     Dosage: 200MG TWICE PER DAY
     Route: 048
     Dates: start: 20040601
  2. EFFEXOR XR [Concomitant]

REACTIONS (3)
  - NAUSEA [None]
  - SOMNOLENCE [None]
  - VOMITING [None]
